FAERS Safety Report 7824389-6 (Version None)
Quarter: 2011Q3

REPORT INFORMATION
  Report Type: 
  Country: None (occurrence: None)
  Receive Date: 20110901
  Receipt Date: 20110303
  Transmission Date: 20111222
  Serious: Yes (Other)
  Sender: FDA-Public Use
  Company Number: 270023USA

PATIENT
  Sex: Male

DRUGS (2)
  1. METOCLOPRAMIDE [Suspect]
  2. METOCLOPRAMIDE [Suspect]
     Dates: start: 20051201, end: 20091101

REACTIONS (4)
  - TREMOR [None]
  - INSOMNIA [None]
  - DYSKINESIA [None]
  - ANXIETY [None]
